FAERS Safety Report 22081207 (Version 1)
Quarter: 2023Q1

REPORT INFORMATION
  Report Type: Spontaneous
  Country: MX (occurrence: MX)
  Receive Date: 20230309
  Receipt Date: 20230309
  Transmission Date: 20230418
  Serious: Yes (Other)
  Sender: FDA-Public Use
  Company Number: MX-BAYER-2023A027622

PATIENT
  Age: 87 Year
  Sex: Female
  Weight: 58 kg

DRUGS (4)
  1. RIVAROXABAN [Suspect]
     Active Substance: RIVAROXABAN
     Indication: Hypertension
     Dosage: 2.5 MG, QD,?XARELTO 2.5 MG
     Route: 048
  2. RIVAROXABAN [Suspect]
     Active Substance: RIVAROXABAN
     Indication: Cerebral ischaemia
     Dosage: XARELTO 2.5 MG
     Route: 048
  3. RIVAROXABAN [Suspect]
     Active Substance: RIVAROXABAN
     Dosage: 0.5 DF, QD,?XARELTO 10 MG
     Route: 048
     Dates: start: 20230228
  4. RIVAROXABAN [Suspect]
     Active Substance: RIVAROXABAN
     Dosage: XARELTO 10 MG
     Route: 048

REACTIONS (3)
  - Cardiogenic shock [Unknown]
  - Wrong technique in product usage process [Unknown]
  - Off label use [Unknown]

NARRATIVE: CASE EVENT DATE: 20230201
